FAERS Safety Report 14020637 (Version 1)
Quarter: 2017Q3

REPORT INFORMATION
  Report Type: Not Available
  Country: US (occurrence: US)
  Receive Date: 20170928
  Receipt Date: 20170928
  Transmission Date: 20171128
  Serious: No
  Sender: FDA-Public Use
  Company Number: US-ANIPHARMA-2017-US-011479

PATIENT
  Age: 56 Year
  Sex: Female
  Weight: 70.31 kg

DRUGS (4)
  1. INDERAL LA [Suspect]
     Active Substance: PROPRANOLOL HYDROCHLORIDE
     Dosage: 1 CAPSULE DAILY
     Route: 048
     Dates: start: 201503
  2. VITAMIN [Concomitant]
     Active Substance: VITAMINS
  3. CALCIUM [Concomitant]
     Active Substance: CALCIUM
  4. ARMOUR THYROID [Concomitant]
     Active Substance: THYROID, PORCINE

REACTIONS (5)
  - Dyspnoea [Recovered/Resolved]
  - Malaise [Recovered/Resolved]
  - Heart rate decreased [Unknown]
  - Heart rate increased [Recovered/Resolved]
  - Weight increased [Unknown]

NARRATIVE: CASE EVENT DATE: 2015
